FAERS Safety Report 16004671 (Version 2)
Quarter: 2019Q1

REPORT INFORMATION
  Report Type: Spontaneous
  Country: BR (occurrence: BR)
  Receive Date: 20190226
  Receipt Date: 20190306
  Transmission Date: 20190418
  Serious: Yes (Hospitalization)
  Sender: FDA-Public Use
  Company Number: BR-TEVA-2019-BR-1016552

PATIENT
  Sex: Male

DRUGS (4)
  1. ETOPOSIDE. [Concomitant]
     Active Substance: ETOPOSIDE
     Indication: BRCA2 GENE MUTATION
  2. CARBOPLATIN. [Suspect]
     Active Substance: CARBOPLATIN
     Indication: BRCA2 GENE MUTATION
  3. CARBOPLATIN. [Suspect]
     Active Substance: CARBOPLATIN
     Indication: HORMONE-REFRACTORY PROSTATE CANCER
     Dosage: RECEIVED SIX CHEMOTHERAPY CYCLES
     Route: 065
     Dates: start: 20180113, end: 201806
  4. ETOPOSIDE. [Concomitant]
     Active Substance: ETOPOSIDE
     Indication: HORMONE-REFRACTORY PROSTATE CANCER
     Dosage: RECEIVED SIX CHEMOTHERAPY CYCLES
     Route: 065
     Dates: start: 20180113, end: 201806

REACTIONS (1)
  - Tumour lysis syndrome [Recovering/Resolving]
